FAERS Safety Report 18098272 (Version 1)
Quarter: 2020Q3

REPORT INFORMATION
  Report Type: Spontaneous
  Country: US (occurrence: US)
  Receive Date: 20200731
  Receipt Date: 20200731
  Transmission Date: 20201103
  Serious: No
  Sender: FDA-Public Use
  Company Number: US-JNJFOC-20200738639

PATIENT
  Age: 66 Year
  Sex: Female
  Weight: 57.66 kg

DRUGS (2)
  1. SPIRONOLACTONE. [Concomitant]
     Active Substance: SPIRONOLACTONE
     Indication: PRODUCT USED FOR UNKNOWN INDICATION
  2. WOMENS ROGAINE UNSCENTED [Suspect]
     Active Substance: MINOXIDIL
     Indication: ALOPECIA
     Dosage: DOSE: HALF CAPFUL?PRODUCT LAST ADMINISTERED ON 23?JUL?2020
     Route: 061
     Dates: start: 201902

REACTIONS (2)
  - Drug ineffective [Unknown]
  - Alopecia [Unknown]
